FAERS Safety Report 5545275-0 (Version None)
Quarter: 2007Q4

REPORT INFORMATION
  Report Type: 
  Country: None (occurrence: None)
  Receive Date: 20071211
  Receipt Date: 20071203
  Transmission Date: 20080405
  Serious: Yes (Other)
  Sender: FDA-Public Use
  Company Number: PHBS2007JP20435

PATIENT
  Age: 59 Year
  Sex: Female
  Weight: 43 kg

DRUGS (7)
  1. ZOMETA [Suspect]
     Indication: METASTASES TO BONE
     Dosage: 4 MG, UNK
     Route: 042
     Dates: start: 20060523, end: 20071106
  2. AREDIA [Suspect]
     Dosage: UNK, UNK
     Route: 042
     Dates: start: 20041111
  3. HERCEPTIN [Concomitant]
     Indication: METASTASES TO BONE
     Dosage: 180 TO 86 MG
     Route: 042
     Dates: start: 20021113
  4. XELODA [Concomitant]
     Indication: METASTASES TO BONE
     Dosage: 2400 TO 1800 MG/DAY
     Route: 048
  5. TAXOTERE [Concomitant]
     Dates: start: 20021101
  6. PACLITAXEL [Concomitant]
     Dates: start: 20041001
  7. RADIOTHERAPY [Concomitant]
     Indication: METASTASES TO BONE
     Dates: start: 20050701

REACTIONS (6)
  - C-REACTIVE PROTEIN INCREASED [None]
  - NEUTROPHIL PERCENTAGE INCREASED [None]
  - OSTEITIS [None]
  - PAIN IN JAW [None]
  - PERIODONTITIS [None]
  - PNEUMONIA [None]
